FAERS Safety Report 15724708 (Version 2)
Quarter: 2019Q1

REPORT INFORMATION
  Report Type: Spontaneous
  Country: US (occurrence: US)
  Receive Date: 20181214
  Receipt Date: 20190116
  Transmission Date: 20190417
  Serious: Yes (Other)
  Sender: FDA-Public Use
  Company Number: US-OTSUKA-2018_016831

PATIENT
  Sex: Female

DRUGS (2)
  1. ABILIFY [Suspect]
     Active Substance: ARIPIPRAZOLE
     Indication: OBSESSIVE-COMPULSIVE DISORDER
  2. ABILIFY [Suspect]
     Active Substance: ARIPIPRAZOLE
     Indication: BIPOLAR DISORDER
     Dosage: 25-50MG, QD
     Route: 065
     Dates: start: 200510, end: 201209

REACTIONS (23)
  - Insomnia [Unknown]
  - Stress [Unknown]
  - Economic problem [Unknown]
  - Urinary tract infection [Unknown]
  - Sleep disorder [Unknown]
  - Trichotillomania [Recovered/Resolved]
  - Somnolence [Unknown]
  - Product use in unapproved indication [Unknown]
  - Vaginal haemorrhage [Unknown]
  - Abdominal pain lower [Unknown]
  - Poor quality sleep [Unknown]
  - Gambling disorder [Recovered/Resolved]
  - Fatigue [Unknown]
  - Dysmenorrhoea [Unknown]
  - Dermatillomania [Recovered/Resolved]
  - Obsessive-compulsive disorder [Recovered/Resolved]
  - Mania [Unknown]
  - Hypomania [Unknown]
  - Nightmare [Unknown]
  - Suicide attempt [Recovered/Resolved]
  - Suicidal ideation [Recovered/Resolved]
  - Dysuria [Unknown]
  - Compulsive shopping [Recovered/Resolved]

NARRATIVE: CASE EVENT DATE: 20061003
